FAERS Safety Report 9003686 (Version 1)
Quarter: 2013Q1

REPORT INFORMATION
  Report Type: Spontaneous
  Country: US (occurrence: US)
  Receive Date: 20130108
  Receipt Date: 20130108
  Transmission Date: 20140127
  Serious: No
  Sender: FDA-Public Use
  Company Number: US-GLAXOSMITHKLINE-A0960992A

PATIENT
  Age: 57 Year
  Sex: Male
  Weight: 90.5 kg

DRUGS (1)
  1. LOVAZA [Suspect]
     Indication: PRODUCT USED FOR UNKNOWN INDICATION
     Dosage: 4CAP AT NIGHT
     Route: 048

REACTIONS (1)
  - Skin odour abnormal [Recovered/Resolved with Sequelae]
